FAERS Safety Report 9526898 (Version 1)
Quarter: 2013Q3

REPORT INFORMATION
  Report Type: Spontaneous
  Country: JP (occurrence: JP)
  Receive Date: 20130916
  Receipt Date: 20130916
  Transmission Date: 20140515
  Serious: Yes (Hospitalization)
  Sender: FDA-Public Use
  Company Number: JP-MYLANLABS-2013S1020388

PATIENT
  Age: 80 Year
  Sex: Male

DRUGS (4)
  1. FLUOROURACIL [Suspect]
     Indication: COLON CANCER STAGE II
     Dosage: 320 MG/M2 BOLUS
     Route: 065
     Dates: start: 200811
  2. FLUOROURACIL [Suspect]
     Indication: COLON CANCER STAGE II
     Dosage: 1920 MG/M2 46-HOUR CONTINUOUS INFUSION
     Route: 050
     Dates: start: 200811
  3. FOLINIC ACID [Concomitant]
     Indication: COLON CANCER STAGE II
     Dosage: 160 MG/M2
     Route: 065
     Dates: start: 200811
  4. IRINOTECAN [Concomitant]
     Indication: COLON CANCER STAGE II
     Dosage: 120 MG/M2
     Route: 065
     Dates: start: 200811

REACTIONS (1)
  - Hyperammonaemic encephalopathy [Recovered/Resolved]
